FAERS Safety Report 14003317 (Version 4)
Quarter: 2017Q4

REPORT INFORMATION
  Report Type: Spontaneous
  Country: US (occurrence: US)
  Receive Date: 20170922
  Receipt Date: 20171106
  Transmission Date: 20180321
  Serious: Yes (Other)
  Sender: FDA-Public Use
  Company Number: US-TEVA-808483ACC

PATIENT
  Age: 48 Year
  Sex: Female

DRUGS (1)
  1. PARAGARD T 380A [Suspect]
     Active Substance: COPPER
     Dates: start: 20120517, end: 20151002

REACTIONS (17)
  - Device expulsion [Recovered/Resolved]
  - Proctalgia [Unknown]
  - Embedded device [Not Recovered/Not Resolved]
  - Dyspareunia [Unknown]
  - Muscle spasms [Unknown]
  - Flank pain [Unknown]
  - Device breakage [Unknown]
  - Malaise [Unknown]
  - Large intestine perforation [Unknown]
  - Pain [Unknown]
  - Ovarian cyst [Unknown]
  - Abdominal discomfort [Unknown]
  - Infection [Unknown]
  - Vulvovaginal pain [Unknown]
  - Back pain [Unknown]
  - Fatigue [Unknown]
  - Loss of libido [Unknown]

NARRATIVE: CASE EVENT DATE: 20151002
